FAERS Safety Report 25035034 (Version 1)
Quarter: 2025Q1

REPORT INFORMATION
  Report Type: Spontaneous
  Country: US (occurrence: US)
  Receive Date: 20250304
  Receipt Date: 20250304
  Transmission Date: 20250408
  Serious: Yes (Hospitalization)
  Sender: EMCURE PHARMACEUTICALS LTD
  Company Number: US-AVET LIFESCIENCES LTD-2025-AVET-000054

PATIENT
  Age: 85 Year
  Sex: Male

DRUGS (15)
  1. LISINOPRIL [Interacting]
     Active Substance: LISINOPRIL
     Indication: Product used for unknown indication
  2. TIZANIDINE [Interacting]
     Active Substance: TIZANIDINE
     Indication: Back pain
  3. ACETAMINOPHEN [Concomitant]
     Active Substance: ACETAMINOPHEN
  4. CHLORPROMAZINE [Concomitant]
     Active Substance: CHLORPROMAZINE
  5. CITALOPRAM [Concomitant]
     Active Substance: CITALOPRAM
  6. FINASTERIDE [Concomitant]
     Active Substance: FINASTERIDE
  7. LIDOCAINE PATCH [Concomitant]
     Active Substance: LIDOCAINE
  8. METFORMIN [Concomitant]
     Active Substance: METFORMIN HYDROCHLORIDE
  9. PRAMIPEXOLE [Concomitant]
     Active Substance: PRAMIPEXOLE
  10. OMEPRAZOLE [Concomitant]
     Active Substance: OMEPRAZOLE
  11. SIMVASTATIN [Concomitant]
     Active Substance: SIMVASTATIN
  12. THEOPHYLLINE [Concomitant]
     Active Substance: THEOPHYLLINE
  13. diclofenac topical gel [Concomitant]
     Route: 061
  14. ACETAMINOPHEN\HYDROCODONE [Concomitant]
     Active Substance: ACETAMINOPHEN\HYDROCODONE
  15. ONDANSETRON [Concomitant]
     Active Substance: ONDANSETRON

REACTIONS (3)
  - Bradycardia [Recovering/Resolving]
  - Hypotension [Recovering/Resolving]
  - Drug interaction [Unknown]
